FAERS Safety Report 13015814 (Version 2)
Quarter: 2017Q2

REPORT INFORMATION
  Report Type: Spontaneous
  Country: US (occurrence: US)
  Receive Date: 20161212
  Receipt Date: 20170613
  Transmission Date: 20170830
  Serious: No
  Sender: FDA-Public Use
  Company Number: US-ASTRAZENECA-2016SF27888

PATIENT
  Sex: Male
  Weight: 93 kg

DRUGS (2)
  1. TUDORZA PRESSAIR [Suspect]
     Active Substance: ACLIDINIUM BROMIDE
     Indication: CHRONIC OBSTRUCTIVE PULMONARY DISEASE
     Dosage: 400 MCG, TWO INHALATIONS TWICE A DAY AND SOMETIMES THREE TIMES A DAY AS NEEDED.
     Route: 055
  2. TUDORZA PRESSAIR [Suspect]
     Active Substance: ACLIDINIUM BROMIDE
     Indication: CHRONIC OBSTRUCTIVE PULMONARY DISEASE
     Dosage: 400 MCG ONE PUFF TWICE A DAY
     Route: 055

REACTIONS (7)
  - Dyspnoea [Unknown]
  - Device issue [Unknown]
  - Intentional product misuse [Unknown]
  - Visual impairment [Unknown]
  - Product taste abnormal [Unknown]
  - Wheezing [Unknown]
  - Fatigue [Unknown]
